APPROVED DRUG PRODUCT: BUSULFAN
Active Ingredient: BUSULFAN
Strength: 6MG/ML
Dosage Form/Route: INJECTABLE;INJECTION
Application: A205672 | Product #001 | TE Code: AP
Applicant: HOSPIRA INC
Approved: Jul 31, 2018 | RLD: No | RS: No | Type: RX